FAERS Safety Report 21290339 (Version 2)
Quarter: 2022Q3

REPORT INFORMATION
  Report Type: Report from Study
  Country: US (occurrence: US)
  Receive Date: 20220902
  Receipt Date: 20220914
  Transmission Date: 20221026
  Serious: Yes (Hospitalization, Other)
  Sender: FDA-Public Use
  Company Number: US-OTSUKA-2022_034420

PATIENT
  Age: 58 Year
  Sex: Female
  Weight: 90.4 kg

DRUGS (2)
  1. CEDAZURIDINE\DECITABINE [Suspect]
     Active Substance: CEDAZURIDINE\DECITABINE
     Indication: Acute myeloid leukaemia
     Dosage: 5 TABLET ( D1-5 )
     Route: 065
     Dates: start: 20220421
  2. VENETOCLAX [Suspect]
     Active Substance: VENETOCLAX
     Indication: Acute myeloid leukaemia
     Dosage: TOTAL DOSE (7300) ( D1-28)
     Route: 065
     Dates: start: 20220421

REACTIONS (14)
  - Failure to thrive [Not Recovered/Not Resolved]
  - Bacterial infection [Not Recovered/Not Resolved]
  - White blood cell count decreased [Not Recovered/Not Resolved]
  - Appendicitis [Not Recovered/Not Resolved]
  - Hypotension [Recovered/Resolved]
  - Bacteraemia [Recovered/Resolved]
  - Confusional state [Not Recovered/Not Resolved]
  - Mental status changes [Not Recovered/Not Resolved]
  - Hepatosplenomegaly [Not Recovered/Not Resolved]
  - Pulmonary mass [Not Recovered/Not Resolved]
  - Enterobacter sepsis [Unknown]
  - Hypokalaemia [Recovered/Resolved]
  - Lethargy [Not Recovered/Not Resolved]
  - Febrile neutropenia [Recovered/Resolved]

NARRATIVE: CASE EVENT DATE: 20220428
